FAERS Safety Report 24223658 (Version 2)
Quarter: 2024Q3

REPORT INFORMATION
  Report Type: Report from Study
  Country: US (occurrence: US)
  Receive Date: 20240819
  Receipt Date: 20240823
  Transmission Date: 20241017
  Serious: Yes (Hospitalization, Other)
  Sender: GILEAD
  Company Number: US-GILEAD-2024-0684425

PATIENT
  Age: 37 Year
  Sex: Female

DRUGS (17)
  1. AZTREONAM LYSINE [Suspect]
     Active Substance: AZTREONAM LYSINE
     Indication: Cystic fibrosis
     Dosage: INHALE 75 MG OF 3 TIMES DAILY CONTINUOUSLY. SEPARATE TREATMENTS BY AT LEAST 4 HOURS
     Route: 055
     Dates: start: 202212
  2. AZTREONAM LYSINE [Suspect]
     Active Substance: AZTREONAM LYSINE
     Indication: Pseudomonas infection
  3. TRIKAFTA [Concomitant]
     Active Substance: ELEXACAFTOR\IVACAFTOR\TEZACAFTOR
  4. POSACONAZOLE [Concomitant]
     Active Substance: POSACONAZOLE
  5. DUPIXENT [Concomitant]
     Active Substance: DUPILUMAB
  6. XOLAIR [Concomitant]
     Active Substance: OMALIZUMAB
  7. LYUMJEV [Concomitant]
     Active Substance: INSULIN LISPRO-AABC
  8. ZYRTEC [Concomitant]
     Active Substance: CETIRIZINE HYDROCHLORIDE
  9. ZITHROMAX [Concomitant]
     Active Substance: AZITHROMYCIN DIHYDRATE
  10. NEXIUM I.V. [Concomitant]
     Active Substance: ESOMEPRAZOLE SODIUM
  11. MEPHYTON [Concomitant]
     Active Substance: PHYTONADIONE
  12. ZINC [Concomitant]
     Active Substance: ZINC
  13. VITAMIN D3 [Concomitant]
     Active Substance: CHOLECALCIFEROL
  14. COLISTIMETHATE [Concomitant]
     Active Substance: COLISTIMETHATE SODIUM
  15. CYANOCOBALAMIN [Concomitant]
     Active Substance: CYANOCOBALAMIN
  16. XOPENEX [Concomitant]
     Active Substance: LEVALBUTEROL HYDROCHLORIDE
  17. PREDNISONE [Concomitant]
     Active Substance: PREDNISONE

REACTIONS (3)
  - Pulmonary haemorrhage [Unknown]
  - Lung disorder [Unknown]
  - Off label use [Not Recovered/Not Resolved]

NARRATIVE: CASE EVENT DATE: 20221201
